FAERS Safety Report 7415341-3 (Version None)
Quarter: 2011Q2

REPORT INFORMATION
  Report Type: 
  Country: None (occurrence: None)
  Receive Date: 20110414
  Receipt Date: 20110405
  Transmission Date: 20111010
  Serious: Yes (Other)
  Sender: FDA-Public Use
  Company Number: A0906978A

PATIENT
  Age: 64 Year
  Sex: Female

DRUGS (11)
  1. LOVAZA [Concomitant]
  2. PROPOXYPHENE NAPSYLATE W/ ACETAMINOPHEN [Concomitant]
  3. MYLANTA [Concomitant]
  4. FUROSEMIDE [Concomitant]
  5. ZOVIRAX [Concomitant]
  6. ONE-A-DAY MULTIVITAMIN [Concomitant]
  7. DIOVAN [Concomitant]
  8. LAMICTAL [Suspect]
     Route: 048
  9. NOVOLOG [Concomitant]
  10. CALCIUM + VITAMIN B [Concomitant]
  11. LANTUS [Concomitant]

REACTIONS (4)
  - MAJOR DEPRESSION [None]
  - CONDITION AGGRAVATED [None]
  - SUICIDAL IDEATION [None]
  - DRUG ADMINISTRATION ERROR [None]
